FAERS Safety Report 11658141 (Version 1)
Quarter: 2015Q4

REPORT INFORMATION
  Report Type: Other
  Country: DK (occurrence: DK)
  Receive Date: 20151024
  Receipt Date: 20151024
  Transmission Date: 20160304
  Serious: Yes (Death)
  Sender: FDA-Public Use
  Company Number: DK-JUBILANT GENERICS LIMITED-1043350

PATIENT
  Age: 38 Year
  Sex: Male
  Weight: 91.36 kg

DRUGS (2)
  1. QUETIAPINE FUMARATE. [Suspect]
     Active Substance: QUETIAPINE FUMARATE
  2. OXYCODONE HYDROCHLORIDE. [Suspect]
     Active Substance: OXYCODONE HYDROCHLORIDE

REACTIONS (2)
  - Toxicity to various agents [Fatal]
  - Death [Fatal]

NARRATIVE: CASE EVENT DATE: 20151012
